FAERS Safety Report 23481226 (Version 3)
Quarter: 2024Q2

REPORT INFORMATION
  Report Type: Spontaneous
  Country: US (occurrence: US)
  Receive Date: 20240205
  Receipt Date: 20240501
  Transmission Date: 20240716
  Serious: No
  Sender: FDA-Public Use
  Company Number: US-PFIZER INC-202400016217

PATIENT
  Age: 15 Year
  Sex: Male
  Weight: 39.484 kg

DRUGS (1)
  1. GENOTROPIN [Suspect]
     Active Substance: SOMATROPIN
     Indication: Hypopituitarism
     Dosage: 1.2 MG, 1X/DAY (UNDER THE SKIN, NIGHTLY)
     Route: 058

REACTIONS (2)
  - Device malfunction [Unknown]
  - Device leakage [Unknown]
